FAERS Safety Report 6407571-4 (Version None)
Quarter: 2009Q4

REPORT INFORMATION
  Report Type: 
  Country: None (occurrence: None)
  Receive Date: 20091015
  Receipt Date: 20091013
  Transmission Date: 20100525
  Serious: Yes (Hospitalization, Other)
  Sender: FDA-Public Use
  Company Number: 2009SP025878

PATIENT
  Age: 48 Year
  Sex: Male
  Weight: 68 kg

DRUGS (3)
  1. VIRAFERONPEG [Suspect]
     Indication: HEPATITIS C
     Dosage: 108 MCG;SC
     Route: 058
     Dates: start: 20090611
  2. REBETOL [Suspect]
     Indication: HEPATITIS C
     Dosage: 1400 MG;QD;PO
     Route: 048
     Dates: start: 20090611
  3. PARACETAMOL (CON.) [Concomitant]

REACTIONS (3)
  - ANAEMIA [None]
  - ARTERIOSPASM CORONARY [None]
  - CORONARY ARTERY STENOSIS [None]
